FAERS Safety Report 12496527 (Version 3)
Quarter: 2017Q2

REPORT INFORMATION
  Report Type: Report from Study
  Country: US (occurrence: US)
  Receive Date: 20160624
  Receipt Date: 20170518
  Transmission Date: 20170830
  Serious: Yes (Hospitalization)
  Sender: FDA-Public Use
  Company Number: US-BIOGEN-2016BI00256690

PATIENT
  Age: 50 Year
  Sex: Male

DRUGS (3)
  1. TECFIDERA [Suspect]
     Active Substance: DIMETHYL FUMARATE
     Dosage: MAINTENANCE DOSE
     Route: 048
     Dates: start: 2015
  2. TECFIDERA [Suspect]
     Active Substance: DIMETHYL FUMARATE
     Indication: MULTIPLE SCLEROSIS
     Route: 048
     Dates: start: 20141001
  3. TECFIDERA [Suspect]
     Active Substance: DIMETHYL FUMARATE
     Dosage: MAINTENANCE DOSE
     Route: 048
     Dates: start: 20141006

REACTIONS (12)
  - Fall [Recovered/Resolved]
  - Abasia [Not Recovered/Not Resolved]
  - Pulmonary thrombosis [Unknown]
  - Lower limb fracture [Unknown]
  - Osteoporosis [Unknown]
  - Arthritis [Not Recovered/Not Resolved]
  - Sepsis [Unknown]
  - Loss of control of legs [Not Recovered/Not Resolved]
  - Confusional state [Unknown]
  - Urinary tract infection [Unknown]
  - Multiple sclerosis relapse [Unknown]
  - Pneumonia [Unknown]

NARRATIVE: CASE EVENT DATE: 201511
